FAERS Safety Report 8289636-8 (Version None)
Quarter: 2012Q2

REPORT INFORMATION
  Report Type: 
  Country: None (occurrence: None)
  Receive Date: 20120417
  Receipt Date: 20120409
  Transmission Date: 20120825
  Serious: Yes (Hospitalization)
  Sender: FDA-Public Use
  Company Number: US-BAYER-2012-015143

PATIENT
  Age: 42 Year
  Sex: Female
  Weight: 78.005 kg

DRUGS (1)
  1. DROSPIRENONE AND ETHINYL ESTRADIOL [Suspect]
     Indication: CONTRACEPTION
     Dosage: UNK
     Dates: start: 20110101, end: 20120118

REACTIONS (4)
  - DEEP VEIN THROMBOSIS [None]
  - SWELLING [None]
  - PAIN [None]
  - TENDERNESS [None]
